FAERS Safety Report 18418537 (Version 2)
Quarter: 2020Q4

REPORT INFORMATION
  Report Type: Spontaneous
  Country: JP (occurrence: JP)
  Receive Date: 20201023
  Receipt Date: 20201029
  Transmission Date: 20210114
  Serious: Yes (Other)
  Sender: FDA-Public Use
  Company Number: NVSJ2020JP010757

PATIENT

DRUGS (1)
  1. JADENU [Suspect]
     Active Substance: DEFERASIROX
     Indication: PRODUCT USED FOR UNKNOWN INDICATION
     Dosage: UNK
     Route: 048

REACTIONS (2)
  - Leukaemia [Unknown]
  - Product use issue [Unknown]
